FAERS Safety Report 8360591-5 (Version None)
Quarter: 2012Q2

REPORT INFORMATION
  Report Type: 
  Country: None (occurrence: None)
  Receive Date: 20120515
  Receipt Date: 20120504
  Transmission Date: 20120825
  Serious: No
  Sender: FDA-Public Use
  Company Number: US-ASTRAZENECA-2010SE14972

PATIENT
  Age: 72 Year
  Sex: Male

DRUGS (2)
  1. NEXIUM [Suspect]
     Route: 048
  2. PLAVIX [Concomitant]

REACTIONS (8)
  - HERPES ZOSTER [None]
  - DIABETES MELLITUS [None]
  - DYSPNOEA [None]
  - HYPOACUSIS [None]
  - CARDIAC DISORDER [None]
  - CHRONIC OBSTRUCTIVE PULMONARY DISEASE [None]
  - NERVE INJURY [None]
  - EAR DISORDER [None]
